FAERS Safety Report 7948504-9 (Version None)
Quarter: 2011Q4

REPORT INFORMATION
  Report Type: 
  Country: None (occurrence: None)
  Receive Date: 20111123
  Receipt Date: 20111121
  Transmission Date: 20120403
  Serious: Yes (Hospitalization)
  Sender: FDA-Public Use
  Company Number: SP04633

PATIENT
  Age: 51 Year
  Sex: Male

DRUGS (2)
  1. SURGAM (TABLETS) [Suspect]
     Indication: BACK PAIN
     Dosage: 2 DOSAGE FORMS (2 DOSAGE FORMS, 1 IN 1 D), ORAL
     Route: 048
     Dates: start: 20110910, end: 20110914
  2. OSMOPREP [Suspect]
     Indication: BOWEL PREPARATION
     Dosage: (32 TABLETS), ORAL
     Route: 048
     Dates: start: 20110915, end: 20110916

REACTIONS (1)
  - COLITIS EROSIVE [None]
